FAERS Safety Report 5341150-5 (Version None)
Quarter: 2007Q2

REPORT INFORMATION
  Report Type: 
  Country: None (occurrence: None)
  Receive Date: 20070404
  Receipt Date: 20061206
  Transmission Date: 20071010
  Serious: No
  Sender: FDA-Public Use
  Company Number: US200611005284

PATIENT
  Age: 51 Year
  Sex: Male

DRUGS (7)
  1. ALIMTA [Suspect]
     Indication: MESOTHELIOMA
     Dosage: INTRAVENOUS
     Route: 042
     Dates: start: 20061128
  2. FENTANYL [Concomitant]
  3. MORPHINE SULFATE [Concomitant]
  4. VITAMIN B12 [Concomitant]
  5. FOLIC ACID [Concomitant]
  6. DEXAMETHASONE TAB [Concomitant]
  7. XANAX /USA/ (ALPRAZOLAM) [Concomitant]

REACTIONS (2)
  - HALLUCINATION, AUDITORY [None]
  - SLEEP DISORDER [None]
